FAERS Safety Report 19314107 (Version 1)
Quarter: 2021Q2

REPORT INFORMATION
  Report Type: Spontaneous
  Country: US (occurrence: US)
  Receive Date: 20210527
  Receipt Date: 20210527
  Transmission Date: 20210717
  Serious: Yes (Hospitalization)
  Sender: FDA-Public Use
  Company Number: None

PATIENT
  Age: 72 Year
  Sex: Male

DRUGS (22)
  1. TYLENOL [Concomitant]
     Active Substance: ACETAMINOPHEN
  2. ASPIRIN. [Concomitant]
     Active Substance: ASPIRIN
  3. METOPROLOL TARTRATE. [Concomitant]
     Active Substance: METOPROLOL TARTRATE
  4. BIOTIN [Concomitant]
     Active Substance: BIOTIN
  5. BACLOFEN. [Concomitant]
     Active Substance: BACLOFEN
  6. CELEBREX [Concomitant]
     Active Substance: CELECOXIB
  7. LEVAQUIN [Concomitant]
     Active Substance: LEVOFLOXACIN
  8. SUPER B [Concomitant]
  9. FENOFIBRATE. [Concomitant]
     Active Substance: FENOFIBRATE
  10. VITAMIN D3 [Concomitant]
     Active Substance: CHOLECALCIFEROL
  11. GLATIRAMER [Suspect]
     Active Substance: GLATIRAMER
  12. INVOKANA [Suspect]
     Active Substance: CANAGLIFLOZIN
  13. FLORAJEN3 [Concomitant]
  14. MAGOX [Concomitant]
  15. JANUMET [Concomitant]
     Active Substance: METFORMIN HYDROCHLORIDE\SITAGLIPTIN PHOSPHATE
  16. MODAFINIL. [Concomitant]
     Active Substance: MODAFINIL
  17. BENTYL [Concomitant]
     Active Substance: DICYCLOMINE HYDROCHLORIDE
  18. FISH OIL [Concomitant]
     Active Substance: FISH OIL
  19. DALFAMPRIDINE. [Suspect]
     Active Substance: DALFAMPRIDINE
     Indication: MULTIPLE SCLEROSIS
     Route: 048
     Dates: start: 20150813
  20. CRANBERRY. [Concomitant]
     Active Substance: CRANBERRY
  21. VITAMIN B12 [Concomitant]
     Active Substance: CYANOCOBALAMIN
  22. INDAPAMIDE. [Concomitant]
     Active Substance: INDAPAMIDE

REACTIONS (2)
  - Pancreatitis [None]
  - Therapy cessation [None]

NARRATIVE: CASE EVENT DATE: 20210518
